FAERS Safety Report 4774934-2 (Version None)
Quarter: 2005Q3

REPORT INFORMATION
  Report Type: 
  Country: None (occurrence: None)
  Receive Date: 20050919
  Receipt Date: 20050909
  Transmission Date: 20060218
  Serious: Yes (Hospitalization, Other)
  Sender: FDA-Public Use
  Company Number: 2005-09-0074

PATIENT
  Age: 40 Year
  Sex: Male
  Weight: 61 kg

DRUGS (4)
  1. PEG-INTON (PEGINTERFERON ALFA -2B) INJECTABLE POWDER [Suspect]
     Indication: HEPATITIS C
     Dosage: SEE IMAGE
     Route: 058
     Dates: start: 20050114, end: 20050101
  2. PEG-INTON (PEGINTERFERON ALFA -2B) INJECTABLE POWDER [Suspect]
     Indication: HEPATITIS C
     Dosage: SEE IMAGE
     Route: 058
     Dates: start: 20050101
  3. PEG-INTON (PEGINTERFERON ALFA -2B) INJECTABLE POWDER [Suspect]
     Indication: HEPATITIS C
     Dosage: SEE IMAGE
     Route: 058
     Dates: start: 20050114
  4. REBETOL [Suspect]
     Indication: HEPATITIS C
     Dosage: 800 MG ORAL
     Route: 048
     Dates: start: 20050114

REACTIONS (4)
  - CONDITION AGGRAVATED [None]
  - VARICOSE VEIN [None]
  - WHITE BLOOD CELL COUNT ABNORMAL [None]
  - WHITE BLOOD CELL COUNT DECREASED [None]
